FAERS Safety Report 5772872-X (Version None)
Quarter: 2008Q2

REPORT INFORMATION
  Report Type: 
  Country: None (occurrence: None)
  Receive Date: 20080613
  Receipt Date: 20080603
  Transmission Date: 20081010
  Serious: Yes (Hospitalization, Other)
  Sender: FDA-Public Use
  Company Number: GB-PFIZER INC-2008037331

PATIENT
  Age: 76 Year
  Sex: Male

DRUGS (1)
  1. DOXAZOSIN MESYLATE [Suspect]
     Indication: HYPERTENSION
     Route: 048

REACTIONS (1)
  - FLOPPY IRIS SYNDROME [None]
